FAERS Safety Report 5296518-2 (Version None)
Quarter: 2007Q2

REPORT INFORMATION
  Report Type: 
  Country: None (occurrence: None)
  Receive Date: 20070413
  Receipt Date: 20070404
  Transmission Date: 20071010
  Serious: Yes (Other)
  Sender: FDA-Public Use
  Company Number: US-GENENTECH-237028

PATIENT
  Sex: Female
  Weight: 92.971 kg

DRUGS (9)
  1. HERCEPTIN [Suspect]
     Indication: BREAST CANCER
     Dosage: 2 MG/KG, 1/WEEK
     Route: 042
     Dates: start: 20070116, end: 20070213
  2. HERCEPTIN [Suspect]
     Dosage: 4 MG/KG, SINGLE
     Route: 042
  3. TAXOL [Suspect]
     Indication: BREAST CANCER
  4. DECADRON [Concomitant]
     Indication: PREMEDICATION
     Dosage: 10 MG, UNK
  5. BENADRYL [Concomitant]
     Indication: PREMEDICATION
     Dosage: 25 MG, UNK
  6. TAGAMET [Concomitant]
     Indication: PREMEDICATION
     Dosage: 300 MG, UNK
  7. MULTI-VITAMIN [Concomitant]
     Dosage: UNK, PRN
  8. ADVIL [Concomitant]
     Indication: DRUG USE FOR UNKNOWN INDICATION
     Dosage: UNK, PRN
  9. VITAMIN B [Concomitant]
     Indication: DRUG USE FOR UNKNOWN INDICATION

REACTIONS (3)
  - ALVEOLITIS [None]
  - HIATUS HERNIA [None]
  - INTERSTITIAL LUNG DISEASE [None]
